FAERS Safety Report 11562546 (Version 2)
Quarter: 2015Q4

REPORT INFORMATION
  Report Type: Spontaneous
  Country: US (occurrence: US)
  Receive Date: 20150928
  Receipt Date: 20151014
  Transmission Date: 20160304
  Serious: No
  Sender: FDA-Public Use
  Company Number: US-GLAXOSMITHKLINE-US2015136354

PATIENT
  Sex: Female

DRUGS (7)
  1. BENLYSTA [Suspect]
     Active Substance: BELIMUMAB
     Dosage: UNK, CYC
     Route: 042
     Dates: start: 20150924
  2. BENLYSTA [Suspect]
     Active Substance: BELIMUMAB
     Dosage: UNK, CYC
     Route: 042
     Dates: start: 20150710
  3. BENLYSTA [Suspect]
     Active Substance: BELIMUMAB
     Indication: SYSTEMIC LUPUS ERYTHEMATOSUS
     Dosage: UNK, CYC
     Route: 042
     Dates: start: 20150626
  4. BENLYSTA [Suspect]
     Active Substance: BELIMUMAB
     Dosage: UNK, CYC
     Route: 042
     Dates: start: 20150717
  5. ADVIL [Concomitant]
     Active Substance: IBUPROFEN
  6. AMITRIPTYLINE [Concomitant]
     Active Substance: AMITRIPTYLINE
  7. BENLYSTA [Suspect]
     Active Substance: BELIMUMAB
     Dosage: UNK, CYC
     Route: 042
     Dates: start: 20150821

REACTIONS (6)
  - Hyperhidrosis [Recovered/Resolved]
  - Stomatitis [Recovering/Resolving]
  - Hypersensitivity [Unknown]
  - Rash [Recovering/Resolving]
  - Feeling of body temperature change [Unknown]
  - Oral herpes [Unknown]

NARRATIVE: CASE EVENT DATE: 2015
